FAERS Safety Report 17885870 (Version 1)
Quarter: 2020Q3

REPORT INFORMATION
  Report Type: Spontaneous
  Country: ES (occurrence: ES)
  Receive Date: 20200611
  Receipt Date: 20200611
  Transmission Date: 20201105
  Serious: Yes (Hospitalization)
  Sender: FDA-Public Use
  Company Number: ES-MYLANLABS-2020M1055550

PATIENT
  Age: 86 Year
  Sex: Female

DRUGS (7)
  1. ETORICOXIB. [Suspect]
     Active Substance: ETORICOXIB
     Indication: BACK PAIN
     Dosage: 30 MILLIGRAM, QD
     Route: 048
     Dates: start: 20200523
  2. PARACETAMOL [Concomitant]
     Active Substance: ACETAMINOPHEN
     Dosage: UNK
  3. TIAMAZOL [Concomitant]
     Active Substance: METHIMAZOLE
     Dosage: UNK
  4. IBUPROFEN. [Suspect]
     Active Substance: IBUPROFEN
     Indication: ARTHRALGIA
     Dosage: 600 MILLIGRAM, BID
     Route: 048
     Dates: start: 20191211
  5. HIDROXIZINA /00058401/ [Suspect]
     Active Substance: HYDROXYZINE HYDROCHLORIDE
     Indication: PRURITUS
     Dosage: 25 MILLIGRAM, Q8H
     Route: 048
     Dates: start: 20181212
  6. ENEAS [Suspect]
     Active Substance: ENALAPRIL MALEATE\NITRENDIPINE
     Indication: NEPHROPATHY
     Dosage: 10 MILLIGRAM, QD
     Dates: start: 20070609
  7. AMERIDE                            /00206601/ [Suspect]
     Active Substance: AMILORIDE HYDROCHLORIDE\HYDROCHLOROTHIAZIDE
     Indication: HYPERTENSIVE NEPHROPATHY
     Dosage: 5 MILLIGRAM, QD
     Dates: start: 20070609

REACTIONS (3)
  - Acute coronary syndrome [Not Recovered/Not Resolved]
  - Cardiac failure [Recovering/Resolving]
  - Acute kidney injury [Recovering/Resolving]

NARRATIVE: CASE EVENT DATE: 20200525
